FAERS Safety Report 6737575-3 (Version None)
Quarter: 2010Q2

REPORT INFORMATION
  Report Type: 
  Country: None (occurrence: None)
  Receive Date: 20100519
  Receipt Date: 20100512
  Transmission Date: 20101027
  Serious: Yes (Death, Other)
  Sender: FDA-Public Use
  Company Number: 2010JP002824

PATIENT
  Age: 68 Year
  Sex: Female

DRUGS (7)
  1. TACROLIMUS [Suspect]
     Indication: LIVER TRANSPLANT
  2. PREDNISOLONE [Suspect]
     Indication: LIVER TRANSPLANT
  3. ANTIBIOTICS FORMULATION [Concomitant]
  4. ANTIFUNGALS FORMULATION [Concomitant]
  5. RIFAMPICIN (RIFAMPICIN) FORMULATION [Concomitant]
  6. ISONIAZID (ISONIAZID) FORMULATION [Concomitant]
  7. STREPTOMYCIN (STREPTOMYCIN) FORMULATION [Concomitant]

REACTIONS (11)
  - ACINETOBACTER TEST POSITIVE [None]
  - BONE TUBERCULOSIS [None]
  - BURKHOLDERIA TEST POSITIVE [None]
  - HEPATIC FAILURE [None]
  - KLEBSIELLA TEST POSITIVE [None]
  - LUNG INFECTION [None]
  - MYCOBACTERIUM TUBERCULOSIS COMPLEX TEST POSITIVE [None]
  - RESPIRATORY FAILURE [None]
  - SPINAL OSTEOARTHRITIS [None]
  - SPUTUM CULTURE POSITIVE [None]
  - STAPHYLOCOCCUS TEST POSITIVE [None]
